FAERS Safety Report 8450593-2 (Version None)
Quarter: 2012Q2

REPORT INFORMATION
  Report Type: 
  Country: None (occurrence: None)
  Receive Date: 20120620
  Receipt Date: 20120615
  Transmission Date: 20120825
  Serious: No
  Sender: FDA-Public Use
  Company Number: US-BAYER-2012-060127

PATIENT
  Sex: Female

DRUGS (6)
  1. AVELOX [Suspect]
     Indication: EAR INFECTION
     Dosage: 400 MG, QD
     Route: 048
     Dates: start: 20110401
  2. ALENDRONATE SODIUM [Concomitant]
  3. LIPITOR [Concomitant]
  4. AVELOX [Suspect]
     Indication: NASOPHARYNGITIS
  5. LEVOTHYROXINE SODIUM [Concomitant]
  6. ANALGESICS [Concomitant]

REACTIONS (2)
  - PARAESTHESIA [None]
  - PAIN [None]
